FAERS Safety Report 9700435 (Version 2)
Quarter: 2013Q4

REPORT INFORMATION
  Report Type: Report from Study
  Country: CA (occurrence: CA)
  Receive Date: 20131121
  Receipt Date: 20131128
  Transmission Date: 20140711
  Serious: Yes (Other)
  Sender: FDA-Public Use
  Company Number: CA-JNJFOC-20131109734

PATIENT
  Age: 35 Year
  Sex: Female
  Weight: 73.2 kg

DRUGS (7)
  1. REMICADE [Suspect]
     Indication: CROHN^S DISEASE
     Dosage: RECEIVED 36 INFUSIONS
     Route: 042
  2. IMURAN [Concomitant]
     Route: 065
  3. REACTINE [Concomitant]
     Route: 065
  4. FLONASE [Concomitant]
     Route: 065
  5. FLOVENT [Concomitant]
     Route: 065
  6. BRICANYL [Concomitant]
     Route: 065
  7. OPTICRON [Concomitant]
     Route: 065

REACTIONS (2)
  - Cholelithiasis [Unknown]
  - Hepatic enzyme increased [Unknown]
